FAERS Safety Report 24109554 (Version 1)
Quarter: 2024Q3

REPORT INFORMATION
  Report Type: Spontaneous
  Country: US (occurrence: US)
  Receive Date: 20240718
  Receipt Date: 20240718
  Transmission Date: 20241017
  Serious: No
  Sender: PFIZER
  Company Number: US-PFIZER INC-202400217742

PATIENT
  Age: 5 Year
  Sex: Female

DRUGS (2)
  1. XELJANZ [Suspect]
     Active Substance: TOFACITINIB CITRATE
     Indication: Alopecia
     Dosage: 2.5 MG, 1X/DAY (HALF A TABLET, ONCE A DAY)
     Route: 048
     Dates: start: 202403
  2. PREDNISONE [Concomitant]
     Active Substance: PREDNISONE
     Dosage: 1 MG

REACTIONS (4)
  - Dizziness [Recovered/Resolved]
  - Pyrexia [Recovered/Resolved]
  - Headache [Recovered/Resolved]
  - Off label use [Unknown]

NARRATIVE: CASE EVENT DATE: 20240601
